FAERS Safety Report 8329818-X (Version None)
Quarter: 2012Q2

REPORT INFORMATION
  Report Type: 
  Country: None (occurrence: None)
  Receive Date: 20120502
  Receipt Date: 20090709
  Transmission Date: 20120825
  Serious: No
  Sender: FDA-Public Use
  Company Number: US-UCBSA-001233

PATIENT
  Sex: Male

DRUGS (3)
  1. VIMPAT [Suspect]
     Route: 048
  2. VIMPAT [Suspect]
     Route: 048
  3. VIMPAT [Suspect]
     Indication: CONVULSION
     Route: 042

REACTIONS (2)
  - INJECTION SITE ERYTHEMA [None]
  - INJECTION SITE SWELLING [None]
